FAERS Safety Report 6473265-2 (Version None)
Quarter: 2009Q4

REPORT INFORMATION
  Report Type: 
  Country: None (occurrence: None)
  Receive Date: 20091204
  Receipt Date: 20080722
  Transmission Date: 20100525
  Serious: Yes (Hospitalization)
  Sender: FDA-Public Use
  Company Number: US-ELI_LILLY_AND_COMPANY-US200806002501

PATIENT
  Sex: Female
  Weight: 50.794 kg

DRUGS (8)
  1. DULOXETINE HYDROCHLORIDE [Suspect]
     Indication: MAJOR DEPRESSION
     Dosage: UNK MG, DAILY (1/D)
     Route: 048
     Dates: start: 20080115
  2. TOPAMAX [Concomitant]
     Indication: MIGRAINE
     Dates: start: 20070501
  3. IMITREX [Concomitant]
     Indication: MIGRAINE
     Dates: start: 20080424, end: 20080427
  4. FROVA [Concomitant]
     Indication: MIGRAINE
     Dates: start: 20080506, end: 20080508
  5. PREDNISONE [Concomitant]
     Indication: MIGRAINE
     Dates: start: 20080504, end: 20080509
  6. COMPAZINE [Concomitant]
     Indication: MIGRAINE
     Dates: start: 20080428, end: 20080428
  7. MAXALT /01406501/ [Concomitant]
     Indication: MIGRAINE
     Dosage: UNK, UNK
     Dates: start: 20080429, end: 20080430
  8. TYLENOL /USA/ [Concomitant]
     Indication: MIGRAINE
     Dates: start: 19870101

REACTIONS (1)
  - STATUS MIGRAINOSUS [None]
